FAERS Safety Report 7483597-7 (Version None)
Quarter: 2011Q2

REPORT INFORMATION
  Report Type: 
  Country: None (occurrence: None)
  Receive Date: 20110517
  Receipt Date: 20110511
  Transmission Date: 20111010
  Serious: No
  Sender: FDA-Public Use
  Company Number: US-PFIZER INC-2011101529

PATIENT
  Sex: Female
  Weight: 52.1 kg

DRUGS (5)
  1. ACETYLSALICYLIC ACID [Concomitant]
     Indication: DIZZINESS
     Dosage: UNK
  2. SYNTHROID [Concomitant]
     Indication: THYROID DISORDER
     Dosage: UNK
  3. ADVIL LIQUI-GELS [Suspect]
     Indication: ARTHRITIS
     Dosage: 200 MG, AS NEEDED
     Route: 048
  4. ADVIL LIQUI-GELS [Suspect]
     Indication: INFLAMMATION
  5. ADVIL LIQUI-GELS [Suspect]
     Indication: ARTHRALGIA

REACTIONS (1)
  - DRUG INEFFECTIVE [None]
